FAERS Safety Report 6193270-3 (Version None)
Quarter: 2009Q2

REPORT INFORMATION
  Report Type: 
  Country: None (occurrence: None)
  Receive Date: 20090518
  Receipt Date: 20090506
  Transmission Date: 20091009
  Serious: Yes (Hospitalization)
  Sender: FDA-Public Use
  Company Number: B0572883A

PATIENT
  Sex: Male
  Weight: 34 kg

DRUGS (7)
  1. ONDANSETRON HCL [Suspect]
     Indication: NAUSEA
     Dosage: 16MG PER DAY
     Route: 042
     Dates: start: 20090310, end: 20090406
  2. ONCOVIN [Suspect]
     Dosage: 6.8MG PER DAY
     Route: 065
     Dates: start: 20090310, end: 20090407
  3. VOGALENE [Suspect]
     Route: 042
     Dates: start: 20090406, end: 20090407
  4. ASPARAGINASE [Suspect]
     Dosage: 6600IU PER DAY
     Route: 030
     Dates: end: 20090406
  5. SOLU-MEDROL [Suspect]
     Dosage: 30MG PER DAY
     Route: 042
     Dates: end: 20090407
  6. DAUNORUBICIN HCL [Suspect]
     Dosage: 44MG PER DAY
     Route: 042
     Dates: end: 20090319
  7. CYTARABINE [Suspect]
     Route: 042
     Dates: end: 20090317

REACTIONS (18)
  - AMIMIA [None]
  - APRAXIA [None]
  - AREFLEXIA [None]
  - CRANIAL NERVE INJURY [None]
  - DIPLOPIA [None]
  - DRUG HYPERSENSITIVITY [None]
  - DYSTONIA [None]
  - EYE MOVEMENT DISORDER [None]
  - EYELID PTOSIS [None]
  - MUSCULAR WEAKNESS [None]
  - NEUROTOXICITY [None]
  - OPHTHALMOPLEGIA [None]
  - PAIN IN EXTREMITY [None]
  - PERIPHERAL MOTOR NEUROPATHY [None]
  - POSTURING [None]
  - TONGUE PARALYSIS [None]
  - TREMOR [None]
  - VISION BLURRED [None]
